FAERS Safety Report 13431380 (Version 3)
Quarter: 2018Q2

REPORT INFORMATION
  Report Type: Spontaneous
  Country: US (occurrence: US)
  Receive Date: 20170412
  Receipt Date: 20180529
  Transmission Date: 20180711
  Serious: Yes (Hospitalization, Other)
  Sender: FDA-Public Use
  Company Number: US-PFIZER INC-2017151620

PATIENT
  Age: 20 Year
  Sex: Female

DRUGS (2)
  1. ALPRAZOLAM. [Suspect]
     Active Substance: ALPRAZOLAM
     Dosage: 40 MG, UNK
     Route: 048
  2. OLANZAPINE. [Suspect]
     Active Substance: OLANZAPINE
     Dosage: 100 MG, UNK
     Route: 048

REACTIONS (4)
  - Overdose [Unknown]
  - Blood pressure increased [Unknown]
  - Heart rate increased [Recovered/Resolved]
  - Delirium [Recovered/Resolved]
